FAERS Safety Report 7704122-9 (Version None)
Quarter: 2011Q3

REPORT INFORMATION
  Report Type: 
  Country: None (occurrence: None)
  Receive Date: 20110823
  Receipt Date: 20110815
  Transmission Date: 20111222
  Serious: Yes (Other)
  Sender: FDA-Public Use
  Company Number: US-ASTRAZENECA-2011SE23106

PATIENT
  Sex: Female

DRUGS (1)
  1. SEROQUEL [Suspect]
     Route: 048

REACTIONS (10)
  - MUSCLE TWITCHING [None]
  - EMOTIONAL DISORDER [None]
  - TOOTH LOSS [None]
  - SLEEP APNOEA SYNDROME [None]
  - TRISMUS [None]
  - LIP SWELLING [None]
  - DENTAL CARIES [None]
  - TARDIVE DYSKINESIA [None]
  - ABNORMAL WEIGHT GAIN [None]
  - DYSKINESIA [None]
